FAERS Safety Report 5803684-6 (Version None)
Quarter: 2008Q3

REPORT INFORMATION
  Report Type: 
  Country: None (occurrence: None)
  Receive Date: 20080708
  Receipt Date: 20070826
  Transmission Date: 20090109
  Serious: No
  Sender: FDA-Public Use
  Company Number: US-AMGEN-KDL240573

PATIENT
  Sex: Male

DRUGS (2)
  1. KINERET [Suspect]
     Indication: DRUG USE FOR UNKNOWN INDICATION
     Route: 058
     Dates: start: 20070401
  2. METHOTREXATE [Concomitant]
     Dates: start: 20060101

REACTIONS (9)
  - ABASIA [None]
  - BLOOD PRESSURE DECREASED [None]
  - HEADACHE [None]
  - HEART RATE DECREASED [None]
  - MUSCULAR WEAKNESS [None]
  - NAUSEA [None]
  - PAIN IN EXTREMITY [None]
  - PALLOR [None]
  - TINNITUS [None]
